FAERS Safety Report 24567680 (Version 2)
Quarter: 2025Q2

REPORT INFORMATION
  Report Type: Report from Study
  Country: US (occurrence: US)
  Receive Date: 20241031
  Receipt Date: 20250512
  Transmission Date: 20250716
  Serious: No
  Sender: TAKEDA
  Company Number: US-TAKEDA-2023TUS072375

PATIENT
  Sex: Female
  Weight: 89 kg

DRUGS (15)
  1. HUMAN IMMUNOGLOBULIN G [Suspect]
     Active Substance: HUMAN IMMUNOGLOBULIN G
     Indication: Immune system disorder
     Dosage: 55 GRAM, Q4WEEKS
     Dates: start: 20230711
  2. HUMAN IMMUNOGLOBULIN G [Suspect]
     Active Substance: HUMAN IMMUNOGLOBULIN G
     Indication: Hypergammaglobulinaemia
  3. ACETAMINOPHEN [Concomitant]
     Active Substance: ACETAMINOPHEN
  4. EPINEPHRINE [Concomitant]
     Active Substance: EPINEPHRINE
  5. SODIUM CHLORIDE [Concomitant]
     Active Substance: SODIUM CHLORIDE
  6. LEVOTHYROXINE SODIUM [Concomitant]
     Active Substance: LEVOTHYROXINE SODIUM
  7. GABAPENTIN [Concomitant]
     Active Substance: GABAPENTIN
  8. LIDOCAINE [Concomitant]
     Active Substance: LIDOCAINE
  9. VITAMIN D3 [Concomitant]
     Active Substance: CHOLECALCIFEROL
  10. DIPHENHYDRAMINE HYDROCHLORIDE [Concomitant]
     Active Substance: DIPHENHYDRAMINE HYDROCHLORIDE
  11. SODIUM CHLORIDE [Concomitant]
     Active Substance: SODIUM CHLORIDE
  12. ACETAMINOPHEN\HYDROCODONE [Concomitant]
     Active Substance: ACETAMINOPHEN\HYDROCODONE
  13. HYDROCODONE [Concomitant]
     Active Substance: HYDROCODONE
  14. CYCLOBENZAPRINE HYDROCHLORIDE [Concomitant]
     Active Substance: CYCLOBENZAPRINE HYDROCHLORIDE
  15. OZEMPIC [Concomitant]
     Active Substance: SEMAGLUTIDE

REACTIONS (11)
  - Musculoskeletal stiffness [Unknown]
  - Ear infection [Unknown]
  - Bronchitis [Unknown]
  - Staphylococcal infection [Unknown]
  - Therapeutic product effect decreased [Unknown]
  - Abdominal discomfort [Unknown]
  - Vision blurred [Unknown]
  - Pyrexia [Unknown]
  - Headache [Unknown]
  - Fatigue [Unknown]
  - Nausea [Unknown]
